FAERS Safety Report 11585318 (Version 1)
Quarter: 2015Q4

REPORT INFORMATION
  Report Type: Spontaneous
  Country: US (occurrence: US)
  Receive Date: 20151001
  Receipt Date: 20151001
  Transmission Date: 20160304
  Serious: Yes (Hospitalization)
  Sender: FDA-Public Use
  Company Number: US-ENDO PHARMACEUTICALS INC.-2015-002922

PATIENT
  Age: 7 Year
  Sex: Female
  Weight: 38.59 kg

DRUGS (2)
  1. SUPPRELIN LA [Suspect]
     Active Substance: HISTRELIN ACETATE
     Indication: PRECOCIOUS PUBERTY
     Route: 065
     Dates: start: 20150828, end: 20150917
  2. SUPPRELIN LA [Suspect]
     Active Substance: HISTRELIN ACETATE
     Indication: PRECOCIOUS PUBERTY
     Route: 065
     Dates: start: 201004

REACTIONS (4)
  - Incision site haemorrhage [Not Recovered/Not Resolved]
  - Implant site cellulitis [Not Recovered/Not Resolved]
  - Implant site infection [Not Recovered/Not Resolved]
  - Incision site swelling [Not Recovered/Not Resolved]

NARRATIVE: CASE EVENT DATE: 20150915
